FAERS Safety Report 16925721 (Version 2)
Quarter: 2020Q1

REPORT INFORMATION
  Report Type: Report from Study
  Country: BR (occurrence: BR)
  Receive Date: 20191016
  Receipt Date: 20200106
  Transmission Date: 20200409
  Serious: Yes (Hospitalization, Other)
  Sender: FDA-Public Use
  Company Number: NVSC2019BR003118

PATIENT
  Sex: Female

DRUGS (1)
  1. COSENTYX [Suspect]
     Active Substance: SECUKINUMAB
     Indication: PRODUCT USED FOR UNKNOWN INDICATION
     Dosage: UNK
     Route: 065
     Dates: start: 20190114

REACTIONS (6)
  - Pulmonary embolism [Unknown]
  - Respiratory disorder [Unknown]
  - Asthma [Unknown]
  - Immunodeficiency [Unknown]
  - Lung disorder [Unknown]
  - Condition aggravated [Unknown]
